FAERS Safety Report 12589566 (Version 1)
Quarter: 2016Q3

REPORT INFORMATION
  Report Type: Spontaneous
  Country: US (occurrence: US)
  Receive Date: 20160725
  Receipt Date: 20160725
  Transmission Date: 20161109
  Serious: No
  Sender: FDA-Public Use
  Company Number: US-ELI_LILLY_AND_COMPANY-US201607008728

PATIENT
  Sex: Male

DRUGS (3)
  1. HUMULIN 70/30 [Suspect]
     Active Substance: INSULIN HUMAN
     Indication: TYPE 2 DIABETES MELLITUS
     Dosage: 30 U, BID
     Route: 065
     Dates: start: 201601
  2. HUMULIN 70/30 [Suspect]
     Active Substance: INSULIN HUMAN
     Dosage: 30 U, BID
     Route: 065
  3. NOVOLIN R [Concomitant]
     Active Substance: INSULIN HUMAN

REACTIONS (3)
  - Pneumonia [Unknown]
  - Blood glucose decreased [Unknown]
  - Blood glucose increased [Recovering/Resolving]
